FAERS Safety Report 15256742 (Version 2)
Quarter: 2018Q3

REPORT INFORMATION
  Report Type: Spontaneous
  Country: US (occurrence: US)
  Receive Date: 20180808
  Receipt Date: 20180920
  Transmission Date: 20181010
  Serious: Yes (Hospitalization, Other)
  Sender: FDA-Public Use
  Company Number: US-009507513-1808USA002272

PATIENT
  Age: 55 Year
  Sex: Female

DRUGS (2)
  1. HYDROCORTONE [Suspect]
     Active Substance: HYDROCORTISONE
     Indication: SECONDARY ADRENOCORTICAL INSUFFICIENCY
     Dosage: UNK
     Route: 048
  2. HYDROCORTONE [Suspect]
     Active Substance: HYDROCORTISONE
     Dosage: UP TO 11 TIMES A DAY
     Route: 048

REACTIONS (2)
  - Adrenocortical insufficiency acute [Recovering/Resolving]
  - Treatment failure [Unknown]

NARRATIVE: CASE EVENT DATE: 201504
